FAERS Safety Report 11384631 (Version 1)
Quarter: 2015Q3

REPORT INFORMATION
  Report Type: Spontaneous
  Country: US (occurrence: US)
  Receive Date: 20150811
  Receipt Date: 20150811
  Transmission Date: 20151125
  Serious: No
  Sender: FDA-Public Use
  Company Number: US-ELI_LILLY_AND_COMPANY-US201106000672

PATIENT
  Age: 73 Year
  Sex: Female
  Weight: 47.62 kg

DRUGS (4)
  1. COUMADIN [Concomitant]
     Active Substance: WARFARIN SODIUM
  2. ADCIRCA [Suspect]
     Active Substance: TADALAFIL
     Dosage: UNK, UNKNOWN
  3. TRACLEER [Concomitant]
     Active Substance: BOSENTAN
  4. TREPROSTINIL [Concomitant]
     Active Substance: TREPROSTINIL
     Indication: PULMONARY ARTERIAL HYPERTENSION
     Dosage: UNK UNK, QID
     Route: 055
     Dates: start: 20110328, end: 20110527

REACTIONS (1)
  - Panic attack [Unknown]

NARRATIVE: CASE EVENT DATE: 20110328
